FAERS Safety Report 8102494-7 (Version None)
Quarter: 2011Q4

REPORT INFORMATION
  Report Type: 
  Country: None (occurrence: None)
  Receive Date: 20111222
  Receipt Date: 20110922
  Transmission Date: 20120403
  Serious: Yes (Hospitalization)
  Sender: FDA-Public Use
  Company Number: UTC-009925

PATIENT
  Age: 73 Year
  Sex: Female
  Weight: 45.4 kg

DRUGS (4)
  1. COUMADIN [Concomitant]
  2. TYVASO [Suspect]
     Indication: PULMONARY HYPERTENSION
     Dosage: 216 MCG (54 MCG, 4 IN 1 D), INHALATION
     Route: 055
     Dates: start: 20110411
  3. REVATIO [Concomitant]
  4. TRACLEER [Concomitant]

REACTIONS (3)
  - PERIPHERAL EMBOLISM [None]
  - DYSPNOEA [None]
  - DIZZINESS [None]
